FAERS Safety Report 6214613-8 (Version None)
Quarter: 2009Q2

REPORT INFORMATION
  Report Type: 
  Country: None (occurrence: None)
  Receive Date: 20090604
  Receipt Date: 20090522
  Transmission Date: 20091009
  Serious: Yes (Hospitalization)
  Sender: FDA-Public Use
  Company Number: CA-PFIZER INC-2009217296

PATIENT
  Age: 42 Year

DRUGS (4)
  1. ZELDOX [Suspect]
     Indication: BIPOLAR DISORDER
     Dosage: 80 MG, 1X/DAY
     Route: 048
     Dates: start: 20090501
  2. ZELDOX [Suspect]
     Indication: SCHIZOPHRENIA
  3. GAMMA-AMINOBUTYRIC ACID [Concomitant]
     Indication: DEPRESSION
  4. SEROTONIN [Concomitant]
     Indication: DEPRESSION

REACTIONS (14)
  - AGGRESSION [None]
  - ANOREXIA [None]
  - CONFUSIONAL STATE [None]
  - COORDINATION ABNORMAL [None]
  - CRYING [None]
  - DIZZINESS [None]
  - EMOTIONAL DISORDER [None]
  - FALL [None]
  - HALLUCINATION, AUDITORY [None]
  - MUSCLE CONTRACTURE [None]
  - OBSESSIVE THOUGHTS [None]
  - PARKINSONIAN GAIT [None]
  - STARING [None]
  - VISUAL IMPAIRMENT [None]
